FAERS Safety Report 24257293 (Version 1)
Quarter: 2024Q3

REPORT INFORMATION
  Report Type: Spontaneous
  Country: US (occurrence: US)
  Receive Date: 20240828
  Receipt Date: 20240828
  Transmission Date: 20241016
  Serious: Yes (Other)
  Sender: ZYDUS PHARM
  Company Number: US-CADILA HEALTHCARE LIMITED-US-ZYDUS-111314

PATIENT

DRUGS (3)
  1. IBRUTINIB [Suspect]
     Active Substance: IBRUTINIB
     Indication: Waldenstrom^s macroglobulinaemia
     Dosage: 420 MILLIGRAM, QD
     Route: 065
  2. IBRUTINIB [Suspect]
     Active Substance: IBRUTINIB
     Dosage: 280 MILLIGRAM, QD
     Route: 065
  3. IBRUTINIB [Suspect]
     Active Substance: IBRUTINIB
     Dosage: 140 MILLIGRAM, QD
     Route: 065

REACTIONS (3)
  - Pruritus [Not Recovered/Not Resolved]
  - Oedema peripheral [Not Recovered/Not Resolved]
  - Staphylococcal infection [Unknown]
